FAERS Safety Report 9405343 (Version 1)
Quarter: 2013Q3

REPORT INFORMATION
  Report Type: Spontaneous
  Country: AU (occurrence: AU)
  Receive Date: 20130717
  Receipt Date: 20130717
  Transmission Date: 20140515
  Serious: Yes (Life-Threatening)
  Sender: FDA-Public Use
  Company Number: AU-009507513-1307AUS004521

PATIENT
  Age: 77 Year
  Sex: Male

DRUGS (4)
  1. SIMVASTATIN [Suspect]
     Dosage: 40 MG, DAILY
     Route: 048
  2. ESCITALOPRAM [Suspect]
     Dosage: 10 MG, DAILY
  3. PRADAXA [Suspect]
     Dosage: 220 MG, DAILY
     Dates: end: 20130620
  4. SOTALOL HYDROCHLORIDE [Suspect]
     Dosage: 80 MG, DAILY

REACTIONS (5)
  - Haemorrhage intracranial [Not Recovered/Not Resolved]
  - Coma scale abnormal [Not Recovered/Not Resolved]
  - Faecal incontinence [Not Recovered/Not Resolved]
  - Vomiting [Not Recovered/Not Resolved]
  - Pyrexia [Not Recovered/Not Resolved]
